FAERS Safety Report 7349206-2 (Version None)
Quarter: 2011Q1

REPORT INFORMATION
  Report Type: 
  Country: None (occurrence: None)
  Receive Date: 20110225
  Receipt Date: 20101118
  Transmission Date: 20110831
  Serious: Yes (Other)
  Sender: FDA-Public Use
  Company Number: 310893

PATIENT
  Age: 46 Year
  Sex: Male
  Weight: 120.2 kg

DRUGS (6)
  1. GLIMEPIRIDE [Concomitant]
  2. TOPRAL /00586501/ (SULTOPRIDE) [Concomitant]
  3. VICTOZA [Suspect]
     Indication: TYPE 2 DIABETES MELLITUS
     Dosage: 1.2 MG, QD, SUBCUTANEOUS
     Route: 058
     Dates: start: 20100415, end: 20100526
  4. SIMVASTATIN [Concomitant]
  5. LEVOTHYROXINE SODIUM [Concomitant]
  6. METFORMIN (METFORMIN) [Concomitant]

REACTIONS (2)
  - DIARRHOEA [None]
  - PANCREATITIS ACUTE [None]
